FAERS Safety Report 10666508 (Version 1)
Quarter: 2014Q4

REPORT INFORMATION
  Report Type: Report from Study
  Country: TW (occurrence: TW)
  Receive Date: 20141221
  Receipt Date: 20141221
  Transmission Date: 20150529
  Serious: Yes (Other)
  Sender: FDA-Public Use
  Company Number: TW-GLAXOSMITHKLINE-TW2014GSK038004

PATIENT
  Age: 12 Month
  Sex: Male

DRUGS (1)
  1. MELPHALAN [Suspect]
     Active Substance: MELPHALAN
     Indication: RETINOBLASTOMA

REACTIONS (4)
  - Vitreous haemorrhage [Unknown]
  - Chorioretinal atrophy [Unknown]
  - Retinal artery occlusion [Unknown]
  - Off label use [Unknown]
